FAERS Safety Report 24070790 (Version 1)
Quarter: 2024Q3

REPORT INFORMATION
  Report Type: Report from Study
  Country: RO (occurrence: RO)
  Receive Date: 20240710
  Receipt Date: 20240710
  Transmission Date: 20241017
  Serious: No
  Sender: ROCHE
  Company Number: RO-ROCHE-3309134

PATIENT
  Age: 43 Year
  Sex: Female
  Weight: 98.0 kg

DRUGS (1)
  1. ALECENSA [Suspect]
     Active Substance: ALECTINIB HYDROCHLORIDE
     Indication: Lung neoplasm
     Route: 048
     Dates: start: 20220721

REACTIONS (1)
  - COVID-19 [Unknown]
